FAERS Safety Report 6280512-9 (Version None)
Quarter: 2009Q3

REPORT INFORMATION
  Report Type: 
  Country: None (occurrence: None)
  Receive Date: 20090724
  Receipt Date: 20080819
  Transmission Date: 20100115
  Serious: No
  Sender: FDA-Public Use
  Company Number: A0744001A

PATIENT
  Age: 58 Year
  Sex: Male
  Weight: 102.3 kg

DRUGS (6)
  1. AVANDIA [Suspect]
     Route: 048
     Dates: start: 20030101
  2. ACTOS [Concomitant]
     Dates: start: 20030101
  3. GLUCOPHAGE [Concomitant]
     Dates: start: 20030101
  4. METFORMIN HCL [Concomitant]
     Dates: start: 20030101
  5. PRECOSE [Concomitant]
     Dates: start: 20030101
  6. GLUCOTROL [Concomitant]
     Dates: start: 20030101

REACTIONS (3)
  - MUSCLE SPASMS [None]
  - NERVE COMPRESSION [None]
  - PAIN [None]
